FAERS Safety Report 4626804-8 (Version None)
Quarter: 2005Q1

REPORT INFORMATION
  Report Type: 
  Country: None (occurrence: None)
  Receive Date: 20050330
  Receipt Date: 20050322
  Transmission Date: 20050727
  Serious: Yes (Hospitalization)
  Sender: FDA-Public Use
  Company Number: BRO-008455

PATIENT
  Sex: Female

DRUGS (2)
  1. IOPAMIDOL-300 [Suspect]
     Indication: COMPUTERISED TOMOGRAM
     Route: 042
  2. IOPAMIDOL-300 [Suspect]
     Indication: PANCREATIC DISORDER
     Route: 042

REACTIONS (2)
  - CONTRAST MEDIA REACTION [None]
  - TOXIC EPIDERMAL NECROLYSIS [None]
